FAERS Safety Report 19859212 (Version 1)
Quarter: 2021Q3

REPORT INFORMATION
  Report Type: Other
  Country: CA (occurrence: CA)
  Receive Date: 20210921
  Receipt Date: 20210921
  Transmission Date: 20211014
  Serious: Yes (Other)
  Sender: FDA-Public Use
  Company Number: CA-LUPIN PHARMACEUTICALS INC.-2021-17491

PATIENT
  Age: 46 Year
  Sex: Female

DRUGS (2)
  1. CEPHALEXIN. [Suspect]
     Active Substance: CEPHALEXIN
     Indication: CELLULITIS
     Dosage: 500 MILLIGRAM, QID (4 EVERY 1 DAY)
     Route: 065
  2. REMICADE [Suspect]
     Active Substance: INFLIXIMAB
     Indication: ANKYLOSING SPONDYLITIS
     Dosage: 600 MILLIGRAM, 1 EVERY 4 WEEKS
     Route: 042

REACTIONS (3)
  - Gastrointestinal disorder [Recovered/Resolved]
  - Cellulitis [Recovered/Resolved]
  - Spinal pain [Recovered/Resolved]
